FAERS Safety Report 8892596 (Version 1)
Quarter: 2012Q4

REPORT INFORMATION
  Report Type: 
  Country: US (occurrence: US)
  Receive Date: 20121107
  Receipt Date: 20121107
  Transmission Date: 20130627
  Serious: No
  Sender: FDA-Public Use
  Company Number: US-AMGEN-USASP2011057298

PATIENT
  Age: 41 Year
  Sex: Female
  Weight: 68.03 kg

DRUGS (5)
  1. ENBREL [Suspect]
     Indication: PRODUCT USED FOR UNKNOWN INDICATION
     Dosage: 50 mg, UNK
     Route: 058
  2. PREDNISONE [Concomitant]
     Dosage: 1 mg, UNK
  3. PLAQUENIL                          /00072602/ [Suspect]
     Dosage: 200 mg, UNK
  4. MELOXICAM [Suspect]
     Dosage: 7.5 mg, UNK
  5. VICODIN [Suspect]
     Dosage: 5500 mg, UNK

REACTIONS (1)
  - Rheumatoid arthritis [Not Recovered/Not Resolved]
